FAERS Safety Report 7501794-9 (Version None)
Quarter: 2011Q2

REPORT INFORMATION
  Report Type: 
  Country: None (occurrence: None)
  Receive Date: 20110523
  Receipt Date: 20110523
  Transmission Date: 20111010
  Serious: Yes (Death, Other)
  Sender: FDA-Public Use
  Company Number: None

PATIENT
  Age: 60 Year
  Sex: Male
  Weight: 99.7913 kg

DRUGS (1)
  1. AVANDIA [Suspect]
     Indication: TYPE 2 DIABETES MELLITUS
     Dosage: 4 MG 1XDAILY
     Dates: start: 20070313, end: 20070325

REACTIONS (2)
  - MYOCARDIAL INFARCTION [None]
  - SUDDEN CARDIAC DEATH [None]
